FAERS Safety Report 14724259 (Version 1)
Quarter: 2018Q2

REPORT INFORMATION
  Report Type: Spontaneous
  Country: US (occurrence: US)
  Receive Date: 20180405
  Receipt Date: 20180405
  Transmission Date: 20180711
  Serious: Yes (Other)
  Sender: FDA-Public Use
  Company Number: US-ABBVIE-18P-163-2312188-00

PATIENT
  Age: 41 Year
  Sex: Male

DRUGS (1)
  1. MAVYRET [Suspect]
     Active Substance: GLECAPREVIR\PIBRENTASVIR
     Indication: PRODUCT USED FOR UNKNOWN INDICATION
     Dosage: STARTED APPROXIMATELY 10 DAYS AGO
     Route: 048
     Dates: start: 201803, end: 20180402

REACTIONS (2)
  - Gallbladder operation [Unknown]
  - Urticaria [Not Recovered/Not Resolved]
